FAERS Safety Report 19749831 (Version 1)
Quarter: 2021Q3

REPORT INFORMATION
  Report Type: Spontaneous
  Country: CA (occurrence: CA)
  Receive Date: 20210826
  Receipt Date: 20210826
  Transmission Date: 20211014
  Serious: Yes (Hospitalization, Other)
  Sender: FDA-Public Use
  Company Number: CA-ACCORD-220221

PATIENT
  Age: 51 Year
  Sex: Male

DRUGS (7)
  1. LINAGLIPTIN [Concomitant]
     Active Substance: LINAGLIPTIN
  2. FENOFIBRATE. [Concomitant]
     Active Substance: FENOFIBRATE
  3. VALPROIC ACID. [Concomitant]
     Active Substance: VALPROIC ACID
  4. PANTOPRAZOLE [Concomitant]
     Active Substance: PANTOPRAZOLE
  5. PFIZER?BIONTECH COVID?19 VACCINE [Interacting]
     Active Substance: TOZINAMERAN
     Indication: COVID-19 IMMUNISATION
  6. CLOZAPINE. [Suspect]
     Active Substance: CLOZAPINE
     Indication: SCHIZOAFFECTIVE DISORDER
     Dosage: REDUCED TO 300 MG/D AND RESTARTED ON 150 MG/D
  7. METFORMIN [Concomitant]
     Active Substance: METFORMIN HYDROCHLORIDE

REACTIONS (8)
  - Fall [Unknown]
  - Delirium [Recovered/Resolved]
  - Toxicity to various agents [Unknown]
  - Drug level increased [Recovered/Resolved]
  - Incontinence [Recovered/Resolved]
  - Sedation complication [Unknown]
  - Drug interaction [Unknown]
  - Condition aggravated [Recovered/Resolved]
